FAERS Safety Report 16258339 (Version 1)
Quarter: 2019Q2

REPORT INFORMATION
  Report Type: Report from Study
  Country: US (occurrence: US)
  Receive Date: 20190430
  Receipt Date: 20190430
  Transmission Date: 20190711
  Serious: Yes (Death)
  Sender: FDA-Public Use
  Company Number: US-REGENERON PHARMACEUTICALS, INC.-2019-28976

PATIENT

DRUGS (1)
  1. CEMIPLIMAB [Suspect]
     Active Substance: CEMIPLIMAB
     Indication: PRODUCT USED FOR UNKNOWN INDICATION
     Dosage: 350 MG, ON HAD 1 TREATMENT
     Route: 042
     Dates: start: 20190304, end: 20190304

REACTIONS (2)
  - Skin exfoliation [Fatal]
  - Wound necrosis [Fatal]

NARRATIVE: CASE EVENT DATE: 20190401
